FAERS Safety Report 4742068-9 (Version None)
Quarter: 2005Q3

REPORT INFORMATION
  Report Type: 
  Country: None (occurrence: None)
  Receive Date: 20050810
  Receipt Date: 20050726
  Transmission Date: 20060218
  Serious: Yes (Disabling)
  Sender: FDA-Public Use
  Company Number: 2005S1005126

PATIENT
  Age: 66 Year
  Sex: Female
  Weight: 68.0396 kg

DRUGS (5)
  1. BUSPIRONE HCL [Suspect]
     Indication: ANXIETY
     Dosage: 15 MG, QD; PO
     Route: 048
     Dates: start: 20040301, end: 20040801
  2. SOTALOL HCL [Concomitant]
  3. ALPRAZOLAM [Concomitant]
  4. LISINOPRIL [Concomitant]
  5. ASPIRIN [Concomitant]

REACTIONS (10)
  - BALANCE DISORDER [None]
  - DEAFNESS [None]
  - DIZZINESS [None]
  - EAR DISORDER [None]
  - EYE DISORDER [None]
  - HEART RATE IRREGULAR [None]
  - MENIERE'S DISEASE [None]
  - MUSCLE TWITCHING [None]
  - OCULAR HYPERAEMIA [None]
  - PALPITATIONS [None]
